FAERS Safety Report 5836171-X (Version None)
Quarter: 2008Q3

REPORT INFORMATION
  Report Type: 
  Country: None (occurrence: None)
  Receive Date: 20080805
  Receipt Date: 20080721
  Transmission Date: 20090109
  Serious: Yes (Other)
  Sender: FDA-Public Use
  Company Number: 230532K07USA

PATIENT
  Age: 64 Year
  Sex: Male
  Weight: 86.1834 kg

DRUGS (6)
  1. REBIF [Suspect]
     Indication: MULTIPLE SCLEROSIS
     Dosage: 44 MCG, 3 IN 1 WEEKS, SUBCUTANEOUS
     Route: 058
     Dates: start: 20050922
  2. LISINOPRIL [Concomitant]
  3. SIMVASTATIN [Concomitant]
  4. B12 (CYANOCOBALAMIN-TANNIN COMPLEX) [Concomitant]
  5. ASPIRIN [Concomitant]
  6. POTASSIUM (POTASSIUM /00031401/) [Concomitant]

REACTIONS (4)
  - CARDIAC VALVE DISEASE [None]
  - PHARYNGEAL CANCER STAGE UNSPECIFIED [None]
  - SALIVARY GLAND CANCER [None]
  - TONGUE NEOPLASM MALIGNANT STAGE UNSPECIFIED [None]
